FAERS Safety Report 23197575 (Version 1)
Quarter: 2023Q4

REPORT INFORMATION
  Report Type: Spontaneous
  Country: US (occurrence: None)
  Receive Date: 20231117
  Receipt Date: 20231117
  Transmission Date: 20240109
  Serious: Yes (Life-Threatening, Hospitalization)
  Sender: FDA-Public Use
  Company Number: None

PATIENT
  Age: 70 Year
  Sex: Female

DRUGS (1)
  1. RIVAROXABAN [Suspect]
     Active Substance: RIVAROXABAN

REACTIONS (5)
  - Flank pain [None]
  - Fall [None]
  - Retroperitoneal haematoma [None]
  - Haemoglobin decreased [None]
  - Renal artery embolisation [None]

NARRATIVE: CASE EVENT DATE: 20231114
